FAERS Safety Report 5454781-9 (Version None)
Quarter: 2007Q3

REPORT INFORMATION
  Report Type: 
  Country: None (occurrence: None)
  Receive Date: 20070917
  Receipt Date: 20070907
  Transmission Date: 20080115
  Serious: No
  Sender: FDA-Public Use
  Company Number: US-BOEHRINGER INGELHEIM PHARMACEUTICALS, INC.-2007-BP-18012BP

PATIENT
  Age: 78 Year
  Sex: Female

DRUGS (4)
  1. SPIRIVA [Suspect]
     Indication: EMPHYSEMA
     Dates: start: 20061127, end: 20061223
  2. SULFAMETHOXAZOLE [Concomitant]
  3. NSAID/ANTI-INFLAMMATORY [Concomitant]
  4. SULFONAMIDES [Concomitant]

REACTIONS (4)
  - ORAL PAIN [None]
  - PHARYNGOLARYNGEAL PAIN [None]
  - RASH [None]
  - STOMATITIS [None]
